FAERS Safety Report 7047321-4 (Version None)
Quarter: 2010Q4

REPORT INFORMATION
  Report Type: 
  Country: None (occurrence: None)
  Receive Date: 20101015
  Receipt Date: 20101004
  Transmission Date: 20110411
  Serious: Yes (Hospitalization)
  Sender: FDA-Public Use
  Company Number: PHHY2010US66012

PATIENT
  Age: 43 Year
  Sex: Female
  Weight: 69 kg

DRUGS (3)
  1. MYFORTIC [Suspect]
     Indication: LUNG TRANSPLANT
     Dosage: 720 MG DAILY
     Route: 048
     Dates: start: 20070601
  2. PREDNISONE [Concomitant]
     Indication: PROPHYLAXIS AGAINST TRANSPLANT REJECTION
     Dosage: 2 MG DAILY
     Route: 048
     Dates: start: 20060508
  3. TACROLIMUS [Concomitant]
     Indication: PROPHYLAXIS AGAINST TRANSPLANT REJECTION
     Dosage: 1 MG DAILY
     Route: 048
     Dates: start: 20060508

REACTIONS (4)
  - CLOSTRIDIUM DIFFICILE COLITIS [None]
  - PNEUMOCYSTIS JIROVECI PNEUMONIA [None]
  - PNEUMOTHORAX [None]
  - PROPHYLAXIS AGAINST TRANSPLANT REJECTION [None]
